FAERS Safety Report 8806679 (Version 1)
Quarter: 2012Q4

REPORT INFORMATION
  Report Type: 
  Country: GR (occurrence: GR)
  Receive Date: 20120925
  Receipt Date: 20120925
  Transmission Date: 20130627
  Serious: Yes (Other)
  Sender: FDA-Public Use
  Company Number: PHHY2012GR081979

PATIENT
  Age: 8 Year
  Sex: Male

DRUGS (2)
  1. ILARIS [Suspect]
     Indication: JUVENILE ARTHRITIS
     Dosage: 4 mg/kg, per month
     Dates: start: 20110228, end: 201207
  2. METHOTREXATE [Concomitant]
     Dosage: 12.5 mg, per week

REACTIONS (3)
  - Iridocyclitis [Recovered/Resolved]
  - Ocular hyperaemia [Recovered/Resolved]
  - Eye pain [Recovered/Resolved]
